FAERS Safety Report 17690409 (Version 1)
Quarter: 2020Q2

REPORT INFORMATION
  Report Type: Spontaneous
  Country: US (occurrence: US)
  Receive Date: 20200421
  Receipt Date: 20200421
  Transmission Date: 20200714
  Serious: No
  Sender: FDA-Public Use
  Company Number: US-TEIKOKU PHARMA USA-TPU2020-00193

PATIENT
  Age: 68 Year
  Sex: Female
  Weight: 138.56 kg

DRUGS (1)
  1. LIDOCAINE PATCH [Suspect]
     Active Substance: LIDOCAINE
     Indication: MUSCLE STRAIN
     Dosage: 1 PATCH ON THE BACK, 1 PATCH TO LEFT ARM ON DIFFERENT DAYS
     Route: 061
     Dates: start: 202003

REACTIONS (3)
  - Wrong technique in product usage process [Unknown]
  - Application site erythema [Recovered/Resolved]
  - Application site pruritus [Recovered/Resolved]

NARRATIVE: CASE EVENT DATE: 202003
